FAERS Safety Report 11240285 (Version 1)
Quarter: 2015Q3

REPORT INFORMATION
  Report Type: Spontaneous
  Country: DE (occurrence: DE)
  Receive Date: 20150706
  Receipt Date: 20150706
  Transmission Date: 20151125
  Serious: Yes (Hospitalization)
  Sender: FDA-Public Use
  Company Number: DE-PFIZER INC-2015220224

PATIENT
  Age: 64 Year
  Sex: Male
  Weight: 95 kg

DRUGS (8)
  1. SERTRALINE HCL [Suspect]
     Active Substance: SERTRALINE HYDROCHLORIDE
     Indication: DEPRESSION
     Dosage: 100 MG, UNK
     Route: 048
     Dates: start: 20141217, end: 20150415
  2. TAVOR [Concomitant]
     Active Substance: LORAZEPAM
     Indication: RESTLESSNESS
     Dosage: UP TO 3 MG/D
     Route: 048
  3. SEROQUEL [Interacting]
     Active Substance: QUETIAPINE FUMARATE
     Indication: PSYCHOTIC DISORDER
     Dosage: 350 MG, UNK
     Route: 048
     Dates: start: 20140722
  4. PANTOPRAZOLE SODIUM. [Concomitant]
     Active Substance: PANTOPRAZOLE SODIUM
     Dosage: 40 MG, UNK
     Route: 048
  5. PROPRANOLOL [Concomitant]
     Active Substance: PROPRANOLOL\PROPRANOLOL HYDROCHLORIDE
     Indication: TREMOR
     Dosage: 30 MG, UNK
     Route: 048
  6. ORFIRIL [Interacting]
     Active Substance: VALPROIC ACID
     Indication: MOOD ALTERED
     Dosage: 1200 MG, UNK
     Dates: start: 20140722
  7. L-THYROXIN [Concomitant]
     Active Substance: LEVOTHYROXINE SODIUM
     Indication: THYROID DISORDER
     Dosage: 25 ?G, UNK
     Route: 048
  8. TROSPIUM [Concomitant]
     Active Substance: TROSPIUM
     Dosage: 15 MG, UNK
     Route: 048

REACTIONS (8)
  - Personality change [Recovered/Resolved]
  - Suicidal ideation [Recovered/Resolved]
  - Serotonin syndrome [Recovered/Resolved]
  - Aggression [Recovered/Resolved]
  - Disorientation [Recovered/Resolved]
  - Aggression [Recovered/Resolved]
  - Dysphoria [Recovered/Resolved]
  - Drug interaction [Recovered/Resolved]

NARRATIVE: CASE EVENT DATE: 201504
